FAERS Safety Report 15396048 (Version 1)
Quarter: 2018Q3

REPORT INFORMATION
  Report Type: Spontaneous
  Country: KZ (occurrence: KZ)
  Receive Date: 20180918
  Receipt Date: 20180918
  Transmission Date: 20181010
  Serious: Yes (Other)
  Sender: FDA-Public Use
  Company Number: PHHY2018KZ094255

PATIENT
  Age: 56 Year
  Sex: Female

DRUGS (3)
  1. PREDNISONE. [Suspect]
     Active Substance: PREDNISONE
     Dosage: 1.25 MG, QD
     Route: 065
  2. PREDNISONE. [Suspect]
     Active Substance: PREDNISONE
     Dosage: 5 MG, QD
     Route: 065
  3. PREDNISONE. [Suspect]
     Active Substance: PREDNISONE
     Indication: PRODUCT USED FOR UNKNOWN INDICATION
     Dosage: 10?30 MG, QD
     Route: 065

REACTIONS (6)
  - Osteoporosis [Recovering/Resolving]
  - Chest pain [Recovering/Resolving]
  - Spinal pain [Recovering/Resolving]
  - Body height decreased [Recovering/Resolving]
  - Rib fracture [Recovering/Resolving]
  - Spinal deformity [Recovering/Resolving]
